FAERS Safety Report 8802693 (Version 1)
Quarter: 2012Q4

REPORT INFORMATION
  Report Type: 
  Country: US (occurrence: US)
  Receive Date: 20120921
  Receipt Date: 20120921
  Transmission Date: 20130627
  Serious: No
  Sender: FDA-Public Use
  Company Number: US-ASTRAZENECA-2012SE71063

PATIENT
  Sex: Female
  Weight: 62.1 kg

DRUGS (4)
  1. FASLODEX [Suspect]
     Indication: BREAST CANCER
     Dosage: monthly
     Route: 030
     Dates: start: 201204
  2. ATENOLOL [Concomitant]
     Indication: BLOOD PRESSURE ABNORMAL
  3. BENACADRYL [Concomitant]
     Indication: BLOOD PRESSURE ABNORMAL
  4. HERCEPTIN [Concomitant]
     Indication: NEOPLASM MALIGNANT

REACTIONS (11)
  - Myalgia [Unknown]
  - Muscle spasms [Unknown]
  - Bone pain [Unknown]
  - Pain in jaw [Unknown]
  - Facial pain [Unknown]
  - Musculoskeletal chest pain [Unknown]
  - Neck pain [Unknown]
  - Pain in extremity [Unknown]
  - Sleep disorder due to a general medical condition [Unknown]
  - Injection site pain [Unknown]
  - Headache [Unknown]
